FAERS Safety Report 10205105 (Version 1)
Quarter: 2014Q2

REPORT INFORMATION
  Report Type: Spontaneous
  Country: US (occurrence: None)
  Receive Date: 20140527
  Receipt Date: 20140527
  Transmission Date: 20141212
  Serious: Yes (Hospitalization)
  Sender: FDA-Public Use
  Company Number: None

PATIENT
  Age: 58 Year
  Sex: Male

DRUGS (8)
  1. SULFAMETHOXAZOLE/TRIMETHOPRIM [Suspect]
     Indication: CELLULITIS
     Route: 048
     Dates: end: 20120630
  2. NIFEDIPINE [Concomitant]
  3. BUPROPION [Concomitant]
  4. MULTIVITAMIN [Concomitant]
  5. OXYCODONE-ACETAMINOPHEN [Concomitant]
  6. ALPRAZOLAM [Concomitant]
  7. ASPIRIN [Concomitant]
  8. ESOMEPRAZOLE [Concomitant]

REACTIONS (5)
  - Erythema [None]
  - Skin exfoliation [None]
  - Swelling [None]
  - Stevens-Johnson syndrome [None]
  - Acute generalised exanthematous pustulosis [None]
